FAERS Safety Report 8956493 (Version 2)
Quarter: 2013Q1

REPORT INFORMATION
  Report Type: Spontaneous
  Country: US (occurrence: US)
  Receive Date: 20121210
  Receipt Date: 20130308
  Transmission Date: 20140127
  Serious: Yes (Hospitalization, Other)
  Sender: FDA-Public Use
  Company Number: US-PFIZER INC-2012306830

PATIENT
  Age: 42 Year
  Sex: Male

DRUGS (2)
  1. NEURONTIN [Suspect]
     Dosage: 600 MG, 3X/DAY
  2. ADDERALL [Suspect]
     Dosage: 300 MG, UNK

REACTIONS (7)
  - Suicide attempt [Unknown]
  - Overdose [Unknown]
  - Road traffic accident [Unknown]
  - Hemiplegia [Unknown]
  - Injury [Unknown]
  - Vocal cord disorder [Unknown]
  - Speech disorder [Unknown]
